FAERS Safety Report 25963564 (Version 1)
Quarter: 2025Q4

REPORT INFORMATION
  Report Type: Report from Study
  Country: CO (occurrence: CO)
  Receive Date: 20251027
  Receipt Date: 20251027
  Transmission Date: 20260117
  Serious: Yes (Hospitalization)
  Sender: BIOVITRUM
  Company Number: CO-AstraZeneca-CH-00977559A

PATIENT
  Age: 8 Week
  Sex: Male

DRUGS (1)
  1. PALIVIZUMAB [Suspect]
     Active Substance: PALIVIZUMAB
     Indication: Antiviral prophylaxis
     Dosage: 15 MILLIGRAM/KILOGRAM, QMONTH?FREQUENCY: 1 MONTH
     Route: 030
     Dates: start: 20251021

REACTIONS (2)
  - Oxygen saturation decreased [Unknown]
  - Poor sucking reflex [Unknown]

NARRATIVE: CASE EVENT DATE: 20251022
